FAERS Safety Report 4818921-4 (Version None)
Quarter: 2005Q4

REPORT INFORMATION
  Report Type: 
  Country: None (occurrence: None)
  Receive Date: 20051102
  Receipt Date: 20051102
  Transmission Date: 20060501
  Serious: Yes (Death, Hospitalization)
  Sender: FDA-Public Use
  Company Number: None

PATIENT
  Sex: Male
  Weight: 73.8 kg

DRUGS (4)
  1. FLUDARABINE [Suspect]
     Indication: ACUTE MYELOID LEUKAEMIA
     Dosage: SEE IMAGE
     Dates: start: 20041214, end: 20041218
  2. FLUDARABINE [Suspect]
     Indication: ACUTE MYELOID LEUKAEMIA
     Dosage: SEE IMAGE
     Dates: start: 20041216
  3. BUSULFAN [Suspect]
     Dosage: SEE IMAGE
     Dates: start: 20041217, end: 20041219
  4. BUSULFAN [Suspect]
     Dosage: SEE IMAGE
     Dates: start: 20041216

REACTIONS (10)
  - APHASIA [None]
  - ASPERGILLOSIS [None]
  - BRAIN SCAN ABNORMAL [None]
  - GRAFT VERSUS HOST DISEASE [None]
  - GRAFT VERSUS HOST DISEASE IN LIVER [None]
  - GRAFT VERSUS HOST DISEASE IN SKIN [None]
  - MENTAL STATUS CHANGES [None]
  - NERVOUS SYSTEM DISORDER [None]
  - NUCLEAR MAGNETIC RESONANCE IMAGING ABNORMAL [None]
  - PYREXIA [None]
